FAERS Safety Report 8193100-4 (Version None)
Quarter: 2012Q1

REPORT INFORMATION
  Report Type: 
  Country: None (occurrence: None)
  Receive Date: 20120308
  Receipt Date: 20120308
  Transmission Date: 20120608
  Serious: No
  Sender: FDA-Public Use
  Company Number: None

PATIENT
  Age: 43 Year
  Sex: Female
  Weight: 77.11 kg

DRUGS (1)
  1. NITROFURANTOIN MACROCRYSTALLINE [Suspect]
     Indication: URINARY TRACT INFECTION
     Dosage: 100.0 MG
     Route: 048
     Dates: start: 20120301, end: 20120305

REACTIONS (5)
  - OROPHARYNGEAL PAIN [None]
  - HICCUPS [None]
  - HEADACHE [None]
  - CHEST PAIN [None]
  - DYSPNOEA [None]
